FAERS Safety Report 23774663 (Version 1)
Quarter: 2024Q2

REPORT INFORMATION
  Report Type: Spontaneous
  Country: US (occurrence: None)
  Receive Date: 20240422
  Receipt Date: 20240422
  Transmission Date: 20240716
  Serious: No
  Sender: FDA-Public Use
  Company Number: None

PATIENT
  Age: 39 Year
  Sex: Female
  Weight: 54.9 kg

DRUGS (9)
  1. NURTEC ODT [Suspect]
     Active Substance: RIMEGEPANT SULFATE
     Indication: Migraine
     Dosage: OTHER QUANTITY : 1 ODT;?FREQUENCY : AS NEEDED;?
     Route: 060
  2. LEVOTHYROXINE SODIUM [Concomitant]
     Active Substance: LEVOTHYROXINE SODIUM
  3. DIENOGEST\ESTRADIOL VALERATE [Concomitant]
     Active Substance: DIENOGEST\ESTRADIOL VALERATE
  4. NURTEC ODT [Concomitant]
     Active Substance: RIMEGEPANT SULFATE
  5. Jamison women^s multivitamin [Concomitant]
  6. Omega 3 with turmeric [Concomitant]
  7. Calcium with magnesium [Concomitant]
  8. VITAMIN D [Concomitant]
     Active Substance: VITAMIN D NOS
  9. MENAQUINONE 6 [Concomitant]
     Active Substance: MENAQUINONE 6

REACTIONS (3)
  - Palpitations [None]
  - Dyspnoea [None]
  - Anxiety [None]
